FAERS Safety Report 20992554 (Version 4)
Quarter: 2022Q3

REPORT INFORMATION
  Report Type: Spontaneous
  Country: JP (occurrence: JP)
  Receive Date: 20220622
  Receipt Date: 20220715
  Transmission Date: 20221026
  Serious: Yes (Life-Threatening, Hospitalization, Other)
  Sender: FDA-Public Use
  Company Number: JP-BAYER-2020-223530

PATIENT
  Age: 78 Year
  Sex: Female
  Weight: 51.5 kg

DRUGS (3)
  1. GADOBUTROL [Suspect]
     Active Substance: GADOBUTROL
     Indication: Metastases to central nervous system
     Dosage: 5.2 ML, ONCE
     Route: 042
     Dates: start: 20201014, end: 20201014
  2. GADOBUTROL [Suspect]
     Active Substance: GADOBUTROL
     Indication: Magnetic resonance imaging head
  3. LUSEOGLIFLOZIN [Concomitant]
     Active Substance: LUSEOGLIFLOZIN
     Indication: Diabetes mellitus
     Dosage: DAILY DOSE 1 DF
     Route: 048

REACTIONS (11)
  - Anaphylactic shock [Recovered/Resolved]
  - Cardio-respiratory arrest [Recovered/Resolved]
  - Disseminated intravascular coagulation [None]
  - Nausea [Recovered/Resolved]
  - Feeling abnormal [Recovered/Resolved]
  - Oxygen saturation decreased [Recovered/Resolved]
  - Blood pressure decreased [Recovered/Resolved]
  - Muscular weakness [None]
  - Depressed level of consciousness [Recovered/Resolved]
  - Erythema [Recovered/Resolved]
  - Haemorrhagic diathesis [None]

NARRATIVE: CASE EVENT DATE: 20201014
